FAERS Safety Report 8341042-3 (Version None)
Quarter: 2012Q2

REPORT INFORMATION
  Report Type: 
  Country: None (occurrence: None)
  Receive Date: 20120507
  Receipt Date: 20120426
  Transmission Date: 20120825
  Serious: Yes (Hospitalization)
  Sender: FDA-Public Use
  Company Number: US-GLAXOSMITHKLINE-A0793954A

PATIENT
  Age: 75 Year
  Sex: Male
  Weight: 141.8 kg

DRUGS (1)
  1. AVANDIA [Suspect]
     Indication: DIABETES MELLITUS
     Route: 048
     Dates: start: 20000101, end: 20070601

REACTIONS (5)
  - SILENT MYOCARDIAL INFARCTION [None]
  - DYSPNOEA [None]
  - FALL [None]
  - BALANCE DISORDER [None]
  - MOBILITY DECREASED [None]
